FAERS Safety Report 5332910-5 (Version None)
Quarter: 2007Q2

REPORT INFORMATION
  Report Type: 
  Country: None (occurrence: None)
  Receive Date: 20070521
  Receipt Date: 20070502
  Transmission Date: 20071010
  Serious: Yes (Hospitalization)
  Sender: FDA-Public Use
  Company Number: DAV-AE-ACY-07-010

PATIENT
  Age: 67 Year
  Sex: Female

DRUGS (1)
  1. ACYCLOVIR [Suspect]
     Indication: FACIAL PALSY
     Dosage: 200MG FIVE X DAILY

REACTIONS (12)
  - AFFECT LABILITY [None]
  - BRAIN OEDEMA [None]
  - BRONCHOPNEUMONIA [None]
  - CEREBRAL ISCHAEMIA [None]
  - COORDINATION ABNORMAL [None]
  - CRANIAL NERVE DISORDER [None]
  - FACIAL PALSY [None]
  - GAIT DISTURBANCE [None]
  - GLASGOW COMA SCALE ABNORMAL [None]
  - NERVOUS SYSTEM DISORDER [None]
  - SOMNOLENCE [None]
  - SUBDURAL HAEMATOMA [None]
